FAERS Safety Report 11689238 (Version 1)
Quarter: 2015Q4

REPORT INFORMATION
  Report Type: Spontaneous
  Country: US (occurrence: None)
  Receive Date: 20151030
  Receipt Date: 20151030
  Transmission Date: 20160304
  Serious: No
  Sender: FDA-Public Use
  Company Number: None

PATIENT
  Age: 49 Year
  Sex: Female
  Weight: 68.04 kg

DRUGS (7)
  1. HYDROXYCHLOROQUINE [Concomitant]
     Active Substance: HYDROXYCHLOROQUINE
  2. LORATADINE. [Concomitant]
     Active Substance: LORATADINE
  3. OMEGA XL (FISH OIL) [Concomitant]
  4. FLUTICASONE PROPIONATE NASAL SPRAY [Suspect]
     Active Substance: FLUTICASONE PROPIONATE
     Indication: MULTIPLE ALLERGIES
     Dosage: 16 GM, 50MCG, ONCE IN THE MORNING, 2 SPRAYS IN EACH NOSTRIL
     Route: 045
  5. MONTELUKAST [Concomitant]
     Active Substance: MONTELUKAST SODIUM
  6. ORENCIA [Concomitant]
     Active Substance: ABATACEPT
  7. ANTIHISTAMINE [Concomitant]
     Active Substance: UNSPECIFIED INGREDIENT

REACTIONS (2)
  - Amnesia [None]
  - Mental impairment [None]
